FAERS Safety Report 8876612 (Version 1)
Quarter: 2012Q4

REPORT INFORMATION
  Report Type: 
  Country: US (occurrence: US)
  Receive Date: 20121029
  Receipt Date: 20121029
  Transmission Date: 20130627
  Serious: Yes (Hospitalization)
  Sender: FDA-Public Use
  Company Number: US-JNJFOC-20121011462

PATIENT
  Age: 49 Year
  Sex: Female

DRUGS (2)
  1. SUDAFED [Suspect]
     Route: 048
  2. SUDAFED [Suspect]
     Indication: NASAL CONGESTION
     Route: 048

REACTIONS (1)
  - Colitis ischaemic [Unknown]
